FAERS Safety Report 5016793-9 (Version None)
Quarter: 2006Q2

REPORT INFORMATION
  Report Type: 
  Country: None (occurrence: None)
  Receive Date: 20060602
  Receipt Date: 20060127
  Transmission Date: 20061013
  Serious: No
  Sender: FDA-Public Use
  Company Number: US-GLAXOSMITHKLINE-A0591268A

PATIENT
  Age: 24 Year
  Sex: Male

DRUGS (4)
  1. AUGMENTIN '125' [Suspect]
     Indication: SINUSITIS
     Dosage: 2TAB TWICE PER DAY
     Route: 048
     Dates: start: 20060125
  2. NASAL DECONGESTANT [Concomitant]
  3. TYLENOL (GELTAB) [Concomitant]
  4. IBUPROFEN [Concomitant]

REACTIONS (2)
  - DIARRHOEA [None]
  - NIGHT SWEATS [None]
